FAERS Safety Report 25406947 (Version 4)
Quarter: 2025Q3

REPORT INFORMATION
  Report Type: Spontaneous
  Country: US (occurrence: US)
  Receive Date: 20250606
  Receipt Date: 20250808
  Transmission Date: 20251021
  Serious: Yes (Other)
  Sender: RIGEL PHARMACEUTICALS
  Company Number: US-RIGEL Pharmaceuticals. INC-20250400009

PATIENT
  Age: 64 Year
  Sex: Female
  Weight: 62.596 kg

DRUGS (4)
  1. TAVALISSE [Suspect]
     Active Substance: FOSTAMATINIB
     Indication: Immune thrombocytopenia
     Dosage: 100 MG,BID
     Route: 048
     Dates: start: 20250301, end: 2025
  2. TAVALISSE [Suspect]
     Active Substance: FOSTAMATINIB
     Indication: Anaemia
     Dosage: 150 MG, BID
     Route: 048
     Dates: start: 202503
  3. TAVALISSE [Suspect]
     Active Substance: FOSTAMATINIB
     Indication: Anaemia
     Dosage: 100 MG,BID
     Route: 048
     Dates: start: 2025, end: 2025
  4. TAVALISSE [Suspect]
     Active Substance: FOSTAMATINIB
     Dosage: 100 MG, BID
     Route: 048
     Dates: start: 2025, end: 20250730

REACTIONS (6)
  - Upper limb fracture [Unknown]
  - Hypertensive crisis [Unknown]
  - Headache [Unknown]
  - Hand fracture [Unknown]
  - Blood pressure increased [Not Recovered/Not Resolved]
  - Diarrhoea [Not Recovered/Not Resolved]

NARRATIVE: CASE EVENT DATE: 20250301
